FAERS Safety Report 20110974 (Version 2)
Quarter: 2022Q1

REPORT INFORMATION
  Report Type: Spontaneous
  Country: US (occurrence: None)
  Receive Date: 20211124
  Receipt Date: 20220107
  Transmission Date: 20220424
  Serious: No
  Sender: FDA-Public Use
  Company Number: 2021A800998

PATIENT
  Sex: Female

DRUGS (2)
  1. BYDUREON BCISE [Suspect]
     Active Substance: EXENATIDE
     Dosage: 2.0MG UNKNOWN
     Route: 065
  2. BYDUREON [Suspect]
     Active Substance: EXENATIDE
     Route: 058

REACTIONS (5)
  - Confusional state [Unknown]
  - Device delivery system issue [Unknown]
  - Device leakage [Unknown]
  - Incorrect dose administered by device [Unknown]
  - Device use issue [Unknown]
